APPROVED DRUG PRODUCT: LANTHANUM CARBONATE
Active Ingredient: LANTHANUM CARBONATE
Strength: EQ 750MG BASE
Dosage Form/Route: TABLET, CHEWABLE;ORAL
Application: A090977 | Product #002 | TE Code: AB
Applicant: BARR LABORATORIES INC A WHOLLY OWNED SUB OF TEVA PHARMACEUTICALS USA INC
Approved: Jan 27, 2022 | RLD: No | RS: No | Type: RX